FAERS Safety Report 9369008 (Version 2)
Quarter: 2013Q3

REPORT INFORMATION
  Report Type: Spontaneous
  Country: US (occurrence: US)
  Receive Date: 20130626
  Receipt Date: 20130711
  Transmission Date: 20140515
  Serious: Yes (Hospitalization)
  Sender: FDA-Public Use
  Company Number: US-BIOGENIDEC-2013BI056508

PATIENT
  Age: 42 Year
  Sex: Female

DRUGS (9)
  1. AVONEX [Suspect]
     Indication: MULTIPLE SCLEROSIS
     Route: 030
     Dates: start: 200312, end: 201208
  2. AVONEX [Suspect]
     Indication: MULTIPLE SCLEROSIS
     Route: 030
     Dates: start: 201208
  3. CYMBALTA [Concomitant]
     Route: 048
     Dates: start: 20120418
  4. D 5000 [Concomitant]
  5. ERGOCALCIFEROL [Concomitant]
     Route: 048
     Dates: start: 20120122
  6. ERGOCALCIFEROL [Concomitant]
     Route: 048
     Dates: start: 20120611
  7. HYDROCHLOROTHIAZIDE [Concomitant]
     Route: 048
  8. MELOXICAM [Concomitant]
     Route: 048
     Dates: start: 20130111
  9. ZOLPIDEM TARTATE [Concomitant]
     Route: 048
     Dates: start: 20120905

REACTIONS (2)
  - Cholecystitis [Recovered/Resolved]
  - Cholelithiasis [Recovered/Resolved]
